FAERS Safety Report 24795132 (Version 1)
Quarter: 2024Q4

REPORT INFORMATION
  Report Type: Spontaneous
  Country: CA (occurrence: CA)
  Receive Date: 20241231
  Receipt Date: 20241231
  Transmission Date: 20250114
  Serious: Yes (Other)
  Sender: DAIICHI
  Company Number: CA-ASTRAZENECA-202412CAN013698CA

PATIENT
  Age: 73 Year
  Sex: Female

DRUGS (1)
  1. TRASTUZUMAB DERUXTECAN [Suspect]
     Active Substance: TRASTUZUMAB DERUXTECAN
     Indication: Breast cancer
     Dosage: UNK
     Route: 065

REACTIONS (4)
  - Chest discomfort [Unknown]
  - Chills [Unknown]
  - Dyspnoea [Unknown]
  - Hypertension [Unknown]
